FAERS Safety Report 8548491-9 (Version None)
Quarter: 2012Q3

REPORT INFORMATION
  Report Type: 
  Country: None (occurrence: None)
  Receive Date: 20120730
  Receipt Date: 20120723
  Transmission Date: 20120928
  Serious: Yes (Other)
  Sender: FDA-Public Use
  Company Number: JP-JNJFOC-20120713399

PATIENT
  Age: 88 Year
  Sex: Female

DRUGS (2)
  1. TRAMADOL HCL [Suspect]
     Indication: PAIN
     Dosage: ONCE A ADAY
     Route: 048
     Dates: start: 20120713, end: 20120713
  2. TRAMADOL HCL [Suspect]
     Dosage: ONCE A DAY
     Route: 048
     Dates: start: 20120712, end: 20120712

REACTIONS (1)
  - DEMENTIA [None]
